FAERS Safety Report 16200118 (Version 4)
Quarter: 2019Q2

REPORT INFORMATION
  Report Type: Report from Study
  Country: US (occurrence: US)
  Receive Date: 20190415
  Receipt Date: 20190527
  Transmission Date: 20190711
  Serious: No
  Sender: FDA-Public Use
  Company Number: US-SA-2019SA102631

PATIENT
  Age: 64 Year
  Sex: Female

DRUGS (7)
  1. TERIFLUNOMIDE. [Suspect]
     Active Substance: TERIFLUNOMIDE
     Indication: MULTIPLE SCLEROSIS
     Dosage: QD
     Route: 048
     Dates: start: 20190402
  2. OXYBUTYNIN. [Concomitant]
     Active Substance: OXYBUTYNIN CHLORIDE
  3. TRAMADOL. [Concomitant]
     Active Substance: TRAMADOL
  4. BACLOFEN. [Concomitant]
     Active Substance: BACLOFEN
  5. VITAMIN D3 [Concomitant]
     Active Substance: CHOLECALCIFEROL
  6. GABAPENTIN. [Concomitant]
     Active Substance: GABAPENTIN
  7. CYANOCOBALAMIN. [Concomitant]
     Active Substance: CYANOCOBALAMIN

REACTIONS (12)
  - Balance disorder [Unknown]
  - Fall [Unknown]
  - Fatigue [Unknown]
  - Hypoaesthesia [Unknown]
  - Depressed mood [Unknown]
  - Asthenia [Unknown]
  - Decreased interest [Unknown]
  - Condition aggravated [Unknown]
  - Depression [Unknown]
  - Limb discomfort [Recovered/Resolved]
  - Fatigue [Recovering/Resolving]
  - Pain [Recovering/Resolving]

NARRATIVE: CASE EVENT DATE: 201904
